FAERS Safety Report 8835996 (Version 2)
Quarter: 2013Q2

REPORT INFORMATION
  Report Type: Spontaneous
  Country: FR (occurrence: FR)
  Receive Date: 20121011
  Receipt Date: 20130417
  Transmission Date: 20140414
  Serious: Yes (Hospitalization, Other)
  Sender: FDA-Public Use
  Company Number: FR-BAYER-2012-102582

PATIENT
  Age: 78 Year
  Sex: Male

DRUGS (3)
  1. NEXAVAR [Suspect]
     Indication: GASTROINTESTINAL STROMAL TUMOUR
     Dosage: 200 MG, BID
     Dates: start: 201207, end: 2012
  2. LOXEN [Concomitant]
     Indication: HYPERTENSION
  3. KARDEGIC [Concomitant]

REACTIONS (4)
  - Haemorrhagic transformation stroke [None]
  - Atrial fibrillation [None]
  - Hemiplegia [Recovering/Resolving]
  - Gastrointestinal stromal cancer [None]
